FAERS Safety Report 5753704-2 (Version None)
Quarter: 2008Q2

REPORT INFORMATION
  Report Type: 
  Country: None (occurrence: None)
  Receive Date: 20080527
  Receipt Date: 20080527
  Transmission Date: 20081010
  Serious: Yes (Hospitalization)
  Sender: FDA-Public Use
  Company Number: None

PATIENT
  Sex: Female
  Weight: 77.7 kg

DRUGS (1)
  1. TAXOL [Suspect]
     Dosage: 300 MG

REACTIONS (11)
  - CELLULITIS [None]
  - COLOSTOMY [None]
  - FIBROMATOSIS [None]
  - INDURATION [None]
  - METABOLIC ACIDOSIS [None]
  - MUSCULOSKELETAL PAIN [None]
  - NECROTISING FASCIITIS [None]
  - SEPTIC EMBOLUS [None]
  - SKIN INFECTION [None]
  - SUBCUTANEOUS ABSCESS [None]
  - SURGICAL PROCEDURE REPEATED [None]
